FAERS Safety Report 6424980-8 (Version None)
Quarter: 2009Q4

REPORT INFORMATION
  Report Type: 
  Country: None (occurrence: None)
  Receive Date: 20091103
  Receipt Date: 20091026
  Transmission Date: 20100525
  Serious: Yes (Hospitalization)
  Sender: FDA-Public Use
  Company Number: JP-ABBOTT-09P-087-0574819-00

PATIENT
  Sex: Female
  Weight: 36.5 kg

DRUGS (16)
  1. HUMIRA [Suspect]
     Indication: RHEUMATOID ARTHRITIS
     Route: 058
     Dates: start: 20090107, end: 20090304
  2. HUMIRA [Suspect]
     Route: 058
     Dates: start: 20090325, end: 20090424
  3. PROGRAF [Suspect]
     Indication: RHEUMATOID ARTHRITIS
     Dosage: 1MG DAILY
     Route: 048
  4. PREDNISOLONE [Concomitant]
     Indication: RHEUMATOID ARTHRITIS
     Dosage: 6MG DAILY
     Route: 048
  5. ETODOLAC [Concomitant]
     Indication: RHEUMATOID ARTHRITIS
     Route: 048
     Dates: end: 20090514
  6. SODIIUM RABEPRAZOLE [Concomitant]
     Indication: REFLUX OESOPHAGITIS
     Route: 048
     Dates: end: 20090126
  7. SODIUM RISEDRONATE HYDRATE [Concomitant]
     Indication: OSTEOPOROSIS
     Route: 048
     Dates: end: 20090514
  8. DILTIAZEM HYDROCHLORIDE [Concomitant]
     Indication: DRUG USE FOR UNKNOWN INDICATION
     Dosage: 200 MG DAILY
     Dates: end: 20090514
  9. ATORVASTATIN CALCIUM HYDRATE [Concomitant]
     Indication: DRUG USE FOR UNKNOWN INDICATION
     Dosage: 10 MG DAILY
     Dates: end: 20090514
  10. PAROXETINE HYDROCHLORIDE [Concomitant]
     Indication: DRUG USE FOR UNKNOWN INDICATION
     Dosage: 20 MG DAILY
     Dates: end: 20090514
  11. MOSAPRIDE CITRATE HYDRATE [Concomitant]
     Indication: DRUG USE FOR UNKNOWN INDICATION
     Dosage: 15 MG DAILY
     Dates: end: 20090514
  12. ELCATONIN [Concomitant]
     Indication: DRUG USE FOR UNKNOWN INDICATION
     Dates: end: 20090514
  13. CALCITRIOL [Concomitant]
     Indication: DRUG USE FOR UNKNOWN INDICATION
     Dosage: 0.5 MICROGRAM DAILY
     Dates: end: 20090514
  14. MISOPROSTO [Concomitant]
     Indication: DRUG USE FOR UNKNOWN INDICATION
     Dosage: 600 MICROGRAM DAILY
     Dates: start: 20090127, end: 20090514
  15. RABEPRAZOLE SODIUM [Concomitant]
     Indication: DRUG USE FOR UNKNOWN INDICATION
     Dosage: 20 MG DAILY
     Dates: start: 20090127, end: 20090514
  16. MAGNESIUM OXIDE [Concomitant]
     Indication: CONSTIPATION
     Dosage: 1320MG DAILY
     Dates: end: 20090514

REACTIONS (1)
  - PNEUMOCYSTIS JIROVECI PNEUMONIA [None]
